FAERS Safety Report 5231386-6 (Version None)
Quarter: 2007Q1

REPORT INFORMATION
  Report Type: 
  Country: None (occurrence: None)
  Receive Date: 20070205
  Receipt Date: 20070205
  Transmission Date: 20070707
  Serious: No
  Sender: FDA-Public Use
  Company Number: None

PATIENT
  Age: 37 Year
  Sex: Female

DRUGS (1)
  1. TRICOR [Suspect]
     Dates: start: 20050830, end: 20051006

REACTIONS (10)
  - ABDOMINAL PAIN [None]
  - CYTOMEGALOVIRUS ANTIBODY POSITIVE [None]
  - DRUG TOXICITY [None]
  - FATIGUE [None]
  - HEPATITIS A ANTIBODY POSITIVE [None]
  - HEPATITIS C ANTIBODY POSITIVE [None]
  - JAUNDICE [None]
  - LIVER INJURY [None]
  - MYALGIA [None]
  - NAUSEA [None]
